FAERS Safety Report 4994775-0 (Version None)
Quarter: 2006Q1

REPORT INFORMATION
  Report Type: 
  Country: None (occurrence: None)
  Receive Date: 20060313
  Receipt Date: 20050519
  Transmission Date: 20060701
  Serious: Yes (Other)
  Sender: FDA-Public Use
  Company Number: PHEH2005US05817

PATIENT
  Age: 54 Year
  Sex: Female

DRUGS (7)
  1. TRILEPTAL [Suspect]
     Indication: AFFECTIVE DISORDER
     Dosage: 900 MG/DAY,ORAL
     Route: 048
     Dates: start: 20041001, end: 20050517
  2. TEGRETOL [Suspect]
     Dosage: ORAL
     Route: 048
  3. ATIVAN [Concomitant]
  4. WELLBUTRIN [Concomitant]
  5. VISTARIL (HYDROXYZINE EMBONATE) [Concomitant]
  6. PROZAC [Concomitant]
  7. ATARAX [Concomitant]

REACTIONS (6)
  - DIPLEGIA [None]
  - ECZEMA [None]
  - FUNGAL INFECTION [None]
  - HYPERSENSITIVITY [None]
  - LYME DISEASE [None]
  - MUSCLE SPASMS [None]
